FAERS Safety Report 19089980 (Version 3)
Quarter: 2022Q2

REPORT INFORMATION
  Report Type: Spontaneous
  Country: FR (occurrence: FR)
  Receive Date: 20210404
  Receipt Date: 20220407
  Transmission Date: 20220721
  Serious: Yes (Hospitalization)
  Sender: FDA-Public Use
  Company Number: None

PATIENT
  Age: 4 Month
  Sex: Female
  Weight: 5 kg

DRUGS (3)
  1. CAMPATH [Suspect]
     Active Substance: ALEMTUZUMAB
     Indication: Omenn syndrome
     Dosage: 0.5 MG/KG, TOTAL
     Route: 041
     Dates: start: 20210310, end: 20210310
  2. CAMPATH [Suspect]
     Active Substance: ALEMTUZUMAB
     Dosage: 0.5 MG/KG
     Route: 041
     Dates: start: 20210316
  3. CYCLOSPORINE [Suspect]
     Active Substance: CYCLOSPORINE
     Indication: Omenn syndrome
     Dosage: 3 MG/KG, QD (MEDICINAL_PRODUCT : SANDIMMUN 50 MG/ML, SOLUTION INJECTABLE POUR PERFUSION I.V.)
     Route: 041
     Dates: start: 20210225, end: 20210317

REACTIONS (2)
  - Vascular purpura [Recovering/Resolving]
  - Thrombotic microangiopathy [Recovering/Resolving]

NARRATIVE: CASE EVENT DATE: 20210311
